FAERS Safety Report 9351025 (Version 1)
Quarter: 2013Q2

REPORT INFORMATION
  Report Type: Spontaneous
  Country: US (occurrence: US)
  Receive Date: 20130617
  Receipt Date: 20130617
  Transmission Date: 20140414
  Serious: No
  Sender: FDA-Public Use
  Company Number: US-ASTRAZENECA-2013SE41567

PATIENT
  Age: 78 Year
  Sex: Female
  Weight: 59 kg

DRUGS (7)
  1. ATACAND [Suspect]
     Indication: HYPERTENSION
     Route: 048
     Dates: start: 2003
  2. CARDURA [Concomitant]
     Indication: HYPERTENSION
     Route: 048
  3. MICROZIDE [Concomitant]
     Indication: HYPERTENSION
     Route: 048
  4. HYDROCHLOROTHIAZIDE [Concomitant]
     Indication: HYPERTENSION
     Route: 048
  5. DOXAEOSIN [Concomitant]
     Indication: HYPERTENSION
     Route: 048
  6. UNSPECIFIED SUPPLEMENTS [Concomitant]
  7. UNSPECIFIED ANTIHYPERTENSIVES [Concomitant]

REACTIONS (4)
  - Drug intolerance [Unknown]
  - Local swelling [Recovered/Resolved]
  - Local swelling [Recovered/Resolved]
  - Weight decreased [Not Recovered/Not Resolved]
